FAERS Safety Report 8286336-5 (Version None)
Quarter: 2012Q2

REPORT INFORMATION
  Report Type: 
  Country: None (occurrence: None)
  Receive Date: 20120411
  Receipt Date: 20120401
  Transmission Date: 20120825
  Serious: Yes (Death)
  Sender: FDA-Public Use
  Company Number: OMX-2012-00002

PATIENT
  Age: 37 Year
  Sex: Male
  Weight: 86 kg

DRUGS (4)
  1. EVICEL [Suspect]
     Indication: HAEMOSTASIS
     Dosage: EPILESIONAL
     Dates: start: 20120109, end: 20120109
  2. THROMBIN NOS [Suspect]
     Indication: HAEMOSTASIS
     Dates: start: 20120109, end: 20120109
  3. NON-STEROIDAL ANTI-INFLAMMATORY DRUGS (DICLOFENAC SODIUM) (DICLOFENAC [Concomitant]
  4. APPLICATOR (SPRAY (NOT INHALATION)) [Concomitant]

REACTIONS (5)
  - PULSELESS ELECTRICAL ACTIVITY [None]
  - CARDIAC ARREST [None]
  - END-TIDAL CO2 DECREASED [None]
  - AIR EMBOLISM [None]
  - DRUG ADMINISTRATION ERROR [None]
